FAERS Safety Report 11120808 (Version 1)
Quarter: 2015Q2

REPORT INFORMATION
  Report Type: Spontaneous
  Country: JP (occurrence: JP)
  Receive Date: 20150519
  Receipt Date: 20150519
  Transmission Date: 20150821
  Serious: Yes (Death, Hospitalization, Other)
  Sender: FDA-Public Use
  Company Number: JP-PAR PHARMACEUTICAL, INC-2015SCPR013978

PATIENT

DRUGS (3)
  1. MILRINONE [Suspect]
     Active Substance: MILRINONE
     Indication: INTESTINAL ISCHAEMIA
     Dosage: 0.05 MCG/KG PER MINUTE
     Route: 042
  2. VASOSTRICT [Suspect]
     Active Substance: VASOPRESSIN
     Indication: SEPTIC SHOCK
     Dosage: 0.05 IU/KG, /HR
     Route: 042
  3. NOREPINEPHRINE [Suspect]
     Active Substance: NOREPINEPHRINE\NOREPINEPHRINE BITARTRATE
     Indication: SEPTIC SHOCK
     Dosage: }0.3 MCG/KG PER MINUTE
     Route: 065

REACTIONS (6)
  - Intestinal ischaemia [Unknown]
  - Condition aggravated [Unknown]
  - Hyperkalaemia [Fatal]
  - Multi-organ failure [Fatal]
  - Vasoconstriction [Unknown]
  - Death [Fatal]
